FAERS Safety Report 16455445 (Version 1)
Quarter: 2019Q2

REPORT INFORMATION
  Report Type: Spontaneous
  Country: US (occurrence: US)
  Receive Date: 20190619
  Receipt Date: 20190619
  Transmission Date: 20190711
  Serious: No
  Sender: FDA-Public Use
  Company Number: US-ROCHE-2155974

PATIENT
  Sex: Female

DRUGS (4)
  1. ACTEMRA [Suspect]
     Active Substance: TOCILIZUMAB
     Indication: ARTHROPATHY
     Dosage: 162MG/0.9ML, CURRENT
     Route: 058
     Dates: start: 20180418
  2. ACTEMRA [Suspect]
     Active Substance: TOCILIZUMAB
     Indication: BLOOD DISORDER
  3. ACTEMRA [Suspect]
     Active Substance: TOCILIZUMAB
     Indication: POLYMYALGIA RHEUMATICA
  4. ACTEMRA [Suspect]
     Active Substance: TOCILIZUMAB
     Indication: TEMPORAL ARTERITIS
     Dosage: CURRENT
     Route: 058
     Dates: start: 201804

REACTIONS (9)
  - Somnolence [Unknown]
  - Pain [Unknown]
  - Depression [Unknown]
  - Asthenia [Unknown]
  - Anxiety [Unknown]
  - Back pain [Unknown]
  - Unevaluable event [Unknown]
  - Fatigue [Unknown]
  - Nervousness [Unknown]
